FAERS Safety Report 9277474 (Version 3)
Quarter: 2013Q3

REPORT INFORMATION
  Report Type: Spontaneous
  Country: CN (occurrence: CN)
  Receive Date: 20130508
  Receipt Date: 20130813
  Transmission Date: 20140515
  Serious: Yes (Death, Hospitalization)
  Sender: FDA-Public Use
  Company Number: CN-ROCHE-1222428

PATIENT
  Age: 70 Year
  Sex: Male

DRUGS (2)
  1. AVASTIN [Suspect]
     Indication: GASTRIC CANCER
     Route: 065
     Dates: start: 20130428
  2. OXALIPLATIN [Concomitant]
     Indication: GASTRIC CANCER

REACTIONS (3)
  - Renal failure [Recovering/Resolving]
  - Death [Fatal]
  - Nasopharyngitis [Unknown]
